FAERS Safety Report 6374423-8 (Version None)
Quarter: 2009Q3

REPORT INFORMATION
  Report Type: 
  Country: None (occurrence: None)
  Receive Date: 20090921
  Receipt Date: 20090904
  Transmission Date: 20100115
  Serious: Yes (Hospitalization, Disabling, Other)
  Sender: FDA-Public Use
  Company Number: CHPA2008US17350

PATIENT
  Age: 55 Year
  Sex: Male

DRUGS (1)
  1. 4 WAY FAST ACTING NASAL SPRAY (NCH) (PHENYLEPHRINE) NASAL SPRAY [Suspect]
     Dates: start: 20070831

REACTIONS (32)
  - ALANINE AMINOTRANSFERASE INCREASED [None]
  - AORTIC DISORDER [None]
  - ATELECTASIS [None]
  - BLOOD ALKALINE PHOSPHATASE INCREASED [None]
  - BLOOD LACTATE DEHYDROGENASE INCREASED [None]
  - CARDIOMEGALY [None]
  - COLLAPSE OF LUNG [None]
  - COUGH [None]
  - DEPRESSION [None]
  - DYSPNOEA [None]
  - EOSINOPHIL COUNT INCREASED [None]
  - FATIGUE [None]
  - FLATULENCE [None]
  - GAIT DISTURBANCE [None]
  - HAEMATOCRIT DECREASED [None]
  - HAEMOGLOBIN DECREASED [None]
  - HYPOVENTILATION [None]
  - LUNG INFILTRATION [None]
  - MALAISE [None]
  - MEDIASTINAL SHIFT [None]
  - MULTIPLE INJURIES [None]
  - MUSCULOSKELETAL CHEST PAIN [None]
  - NASOPHARYNGITIS [None]
  - OROPHARYNGEAL PAIN [None]
  - PAIN [None]
  - PLATELET COUNT INCREASED [None]
  - PNEUMOTHORAX [None]
  - PULMONARY AIR LEAKAGE [None]
  - RED BLOOD CELL COUNT DECREASED [None]
  - SHOCK [None]
  - SUBCUTANEOUS EMPHYSEMA [None]
  - UPPER RESPIRATORY TRACT INFECTION [None]
